FAERS Safety Report 15940306 (Version 2)
Quarter: 2019Q1

REPORT INFORMATION
  Report Type: Report from Study
  Country: US (occurrence: US)
  Receive Date: 20190208
  Receipt Date: 20190219
  Transmission Date: 20190417
  Serious: Yes (Hospitalization)
  Sender: FDA-Public Use
  Company Number: US-TAIHO ONCOLOGY  INC-EU-2018-02260

PATIENT
  Sex: Male
  Weight: 64.92 kg

DRUGS (26)
  1. MEGESTROL ACETATE. [Concomitant]
     Active Substance: MEGESTROL ACETATE
     Dosage: 625 MCG/5
  2. VENTOLIN HFA [Concomitant]
     Active Substance: ALBUTEROL SULFATE
  3. BOOST [Concomitant]
     Active Substance: DIETARY SUPPLEMENT
     Dosage: NI
  4. LONSURF [Suspect]
     Active Substance: TIPIRACIL HYDROCHLORIDE\TRIFLURIDINE
     Indication: RECTOSIGMOID CANCER
  5. ALPRAZOLAM. [Concomitant]
     Active Substance: ALPRAZOLAM
  6. ALBUTEROL. [Concomitant]
     Active Substance: ALBUTEROL
     Dosage: NI
  7. GUAIFENESIN DEXTROMETH [Concomitant]
     Dosage: 100-10M
  8. MORPHINE SULPHATE [Concomitant]
     Active Substance: MORPHINE SULFATE
     Dosage: ER
  9. PREDNISONE. [Concomitant]
     Active Substance: PREDNISONE
  10. OXYCODONE HYDROCHLORIDE. [Concomitant]
     Active Substance: OXYCODONE HYDROCHLORIDE
  11. PROCHLORPERAZINE MALEATE. [Concomitant]
     Active Substance: PROCHLORPERAZINE MALEATE
  12. NARCAN [Concomitant]
     Active Substance: NALOXONE HYDROCHLORIDE
     Dosage: NI
  13. XARELTO [Concomitant]
     Active Substance: RIVAROXABAN
  14. ORAVIG [Concomitant]
     Active Substance: MICONAZOLE
     Dosage: NI
  15. AVASTIN [Concomitant]
     Active Substance: BEVACIZUMAB
     Dosage: 25 MG/M
  16. FENTANYL. [Concomitant]
     Active Substance: FENTANYL
  17. PAIN RELIEVER [Concomitant]
  18. PULMICORT FLEXHALER [Concomitant]
     Active Substance: BUDESONIDE
  19. LONSURF [Suspect]
     Active Substance: TIPIRACIL HYDROCHLORIDE\TRIFLURIDINE
     Indication: COLORECTAL CANCER METASTATIC
     Dosage: CYCLE 2 STARTED ON 04/OCT/2018, INTERRUPTED ON AN UNSPECIFIED DATE
     Route: 048
     Dates: start: 201809
  20. TAMSULOSIN [Concomitant]
     Active Substance: TAMSULOSIN
     Dosage: NI
  21. ANORO ELLIPTA [Concomitant]
     Active Substance: UMECLIDINIUM BROMIDE\VILANTEROL TRIFENATATE
     Dosage: 62.5-25
  22. FLUOXETINE HYDROCHLORIDE. [Concomitant]
     Active Substance: FLUOXETINE HYDROCHLORIDE
  23. AZITHROMYCIN ANHYDROUS. [Concomitant]
     Active Substance: AZITHROMYCIN ANHYDROUS
  24. LEVOFLOXACIN. [Concomitant]
     Active Substance: LEVOFLOXACIN
     Dosage: NI
  25. STIOLTO RESPIMAT [Concomitant]
     Active Substance: OLODATEROL HYDROCHLORIDE\TIOTROPIUM BROMIDE MONOHYDRATE
     Dosage: NI
  26. LOMOTIL [Concomitant]
     Active Substance: ATROPINE SULFATE\DIPHENOXYLATE HYDROCHLORIDE
     Dosage: NI

REACTIONS (5)
  - Pneumonia [Unknown]
  - Therapy cessation [None]
  - Chest pain [Unknown]
  - White blood cell count decreased [Recovered/Resolved]
  - Drug ineffective [Unknown]

NARRATIVE: CASE EVENT DATE: 2018
